FAERS Safety Report 4377887-4 (Version None)
Quarter: 2004Q2

REPORT INFORMATION
  Report Type: 
  Country: None (occurrence: None)
  Receive Date: 20040601
  Receipt Date: 20040211
  Transmission Date: 20050107
  Serious: No
  Sender: FDA-Public Use
  Company Number: WAES 0402USA00921

PATIENT
  Age: 57 Year
  Sex: Female

DRUGS (10)
  1. ZETIA [Suspect]
     Indication: BLOOD CHOLESTEROL INCREASED
     Dosage: PO
     Route: 048
     Dates: start: 20030901, end: 20030101
  2. AVANDIA [Concomitant]
  3. CLARINEX [Concomitant]
  4. GLUCOPHAGE [Concomitant]
  5. HUMALOG [Concomitant]
  6. HUMULIN [Concomitant]
  7. NEXIUM [Concomitant]
  8. PLAVIX [Concomitant]
  9. VASOTEC [Concomitant]
  10. VERAPAMIL [Concomitant]

REACTIONS (9)
  - ATRIAL FIBRILLATION [None]
  - DIZZINESS [None]
  - DRUG INTERACTION INHIBITION [None]
  - DYSPEPSIA [None]
  - DYSPNOEA [None]
  - FATIGUE [None]
  - MUSCLE CRAMP [None]
  - MUSCLE SPASMS [None]
  - RHINORRHOEA [None]
